FAERS Safety Report 8521207 (Version 2)
Quarter: 2013Q3

REPORT INFORMATION
  Report Type: Spontaneous
  Country: FR (occurrence: FR)
  Receive Date: 20120419
  Receipt Date: 20130930
  Transmission Date: 20140515
  Serious: Yes (Other)
  Sender: FDA-Public Use
  Company Number: PHHY2012FR031339

PATIENT
  Age: 67 Year
  Sex: Male

DRUGS (12)
  1. TAREG [Suspect]
     Indication: HYPERTENSION
     Dosage: 1 DF, QD
     Route: 065
     Dates: start: 2004
  2. INIPOMP [Suspect]
     Dosage: 1 DF, QD
     Dates: start: 2004, end: 20120307
  3. MOLSIDOMINE [Suspect]
     Indication: CONGESTIVE CARDIOMYOPATHY
     Dosage: 1 DF, TID
     Dates: start: 2004
  4. PREVISCAN [Suspect]
     Indication: ATRIAL FIBRILLATION
     Dosage: 1 DF, QD
     Route: 048
     Dates: start: 2004
  5. AMLOR [Suspect]
     Indication: HYPERTENSION
     Dosage: 2 DF, QD
     Route: 048
     Dates: start: 2004
  6. KARDEGIC [Suspect]
     Indication: CONGESTIVE CARDIOMYOPATHY
     Dosage: 1 DF, QD
     Route: 048
     Dates: start: 2004, end: 20120307
  7. VASTAREL [Suspect]
     Indication: CONGESTIVE CARDIOMYOPATHY
     Dosage: 2 DF, QD
     Dates: start: 2004, end: 20120307
  8. CARDENSIEL [Suspect]
     Indication: CONGESTIVE CARDIOMYOPATHY
     Dosage: 1 DF, QD
     Dates: start: 2004
  9. CRESTOR [Suspect]
     Indication: DYSLIPIDAEMIA
     Dosage: 1 DF, QD
     Dates: start: 2004
  10. EZETROL [Suspect]
     Indication: DYSLIPIDAEMIA
     Dosage: 1 DF, QD
     Route: 048
     Dates: start: 2004
  11. IKOREL [Suspect]
     Indication: CONGESTIVE CARDIOMYOPATHY
     Dosage: 1 DF, BID
     Route: 048
     Dates: start: 2004
  12. PLAVIX [Concomitant]
     Dates: start: 20120307

REACTIONS (2)
  - Hyperhidrosis [Recovered/Resolved]
  - Burning sensation [Unknown]
